FAERS Safety Report 9054199 (Version 1)
Quarter: 2013Q1

REPORT INFORMATION
  Report Type: Report from Study
  Country: US (occurrence: US)
  Receive Date: 20130208
  Receipt Date: 20130208
  Transmission Date: 20140127
  Serious: Yes (Hospitalization)
  Sender: FDA-Public Use
  Company Number: US-VERTEX PHARMACEUTICALS INC.-2013-001785

PATIENT
  Sex: Male

DRUGS (3)
  1. VX-770 [Suspect]
     Indication: CYSTIC FIBROSIS
     Dosage: UNK
     Dates: start: 20120410
  2. VX-770 [Suspect]
     Dosage: UNK
  3. VX-770 [Suspect]
     Dosage: UNK

REACTIONS (2)
  - Malaise [Recovered/Resolved]
  - Drug dose omission [Unknown]
